FAERS Safety Report 5941112-0 (Version None)
Quarter: 2008Q4

REPORT INFORMATION
  Report Type: 
  Country: None (occurrence: None)
  Receive Date: 20081104
  Receipt Date: 20081020
  Transmission Date: 20090506
  Serious: Yes (Hospitalization)
  Sender: FDA-Public Use
  Company Number: JP-GENENTECH-270790

PATIENT
  Sex: Female

DRUGS (17)
  1. AVASTIN [Suspect]
     Indication: COLON CANCER METASTATIC
     Dosage: 5 MG/KG, QD
     Route: 041
     Dates: start: 20070821, end: 20080818
  2. ELPLAT [Suspect]
     Indication: COLON CANCER METASTATIC
     Dosage: 65 MG/M2, QD
     Route: 041
     Dates: start: 20070821, end: 20080801
  3. FLUOROURACIL [Suspect]
     Indication: COLON CANCER METASTATIC
     Dosage: 300 MG/M2, QD
     Route: 042
     Dates: start: 20070821, end: 20080820
  4. LEUCOVORIN CALCIUM [Suspect]
     Indication: COLON CANCER METASTATIC
     Dosage: 100 MG/M2, QD
     Route: 041
     Dates: start: 20070821, end: 20080819
  5. METHYLPREDNISOLONE SODIUM SUCCINATE [Suspect]
     Indication: DERMATOMYOSITIS
     Dosage: 1 G, QD
     Route: 041
     Dates: start: 20071203, end: 20071228
  6. IRINOTECAN HYDROCHLORIDE [Suspect]
     Indication: COLON CANCER METASTATIC
     Dosage: UNK
     Route: 041
     Dates: start: 20071127, end: 20080818
  7. ALDACTONE [Concomitant]
     Indication: DRUG USE FOR UNKNOWN INDICATION
     Dosage: UNK
     Dates: start: 20070817, end: 20070830
  8. ALDACTONE [Concomitant]
     Dosage: UNK
     Dates: start: 20080701, end: 20081005
  9. LASIX [Concomitant]
     Indication: DRUG USE FOR UNKNOWN INDICATION
     Dosage: UNK
     Dates: start: 20070817
  10. MUCOSOLVAN [Concomitant]
     Indication: DRUG USE FOR UNKNOWN INDICATION
     Dosage: UNK
     Dates: start: 20070817
  11. NORVASC [Concomitant]
     Indication: DRUG USE FOR UNKNOWN INDICATION
     Dosage: UNK
     Dates: start: 20070817
  12. MAGNESIUM OXIDE [Concomitant]
     Indication: DRUG USE FOR UNKNOWN INDICATION
     Dosage: UNK
     Dates: start: 20070817
  13. LIPITOR [Concomitant]
     Indication: DRUG USE FOR UNKNOWN INDICATION
     Dosage: UNK
     Dates: start: 20070817
  14. MEROPEN (JAPAN) [Concomitant]
     Indication: DRUG USE FOR UNKNOWN INDICATION
     Dosage: UNK
     Dates: start: 20070820, end: 20070821
  15. OMEPRAZOLE [Concomitant]
     Indication: DRUG USE FOR UNKNOWN INDICATION
     Dosage: UNK
     Dates: start: 20080201, end: 20081004
  16. COTRIM [Concomitant]
     Indication: DRUG USE FOR UNKNOWN INDICATION
     Dosage: UNK
     Dates: start: 20080201, end: 20081004
  17. PITAVASTATIN [Concomitant]
     Indication: DRUG USE FOR UNKNOWN INDICATION
     Dosage: UNK
     Dates: start: 20080301, end: 20081004

REACTIONS (1)
  - DRUG ERUPTION [None]
